FAERS Safety Report 20184403 (Version 4)
Quarter: 2022Q1

REPORT INFORMATION
  Report Type: Report from Study
  Country: TR (occurrence: TR)
  Receive Date: 20211214
  Receipt Date: 20220218
  Transmission Date: 20220423
  Serious: Yes (Death, Life-Threatening, Hospitalization, Other)
  Sender: FDA-Public Use
  Company Number: TR-ABBVIE-21P-161-4194866-00

PATIENT
  Age: 56 Year
  Sex: Female
  Weight: 55 kg

DRUGS (26)
  1. VENETOCLAX [Suspect]
     Active Substance: VENETOCLAX
     Indication: Myelodysplastic syndrome
     Dosage: 14 DAYS ON, 14 DAYS OFF
     Route: 048
     Dates: start: 20211115, end: 20211117
  2. VENETOCLAX [Suspect]
     Active Substance: VENETOCLAX
     Dosage: 14 DAYS ON, 14 DAYS OFF
     Route: 048
     Dates: start: 20211118, end: 20211128
  3. AZACITIDINE [Suspect]
     Active Substance: AZACITIDINE
     Indication: Myelodysplastic syndrome
     Dosage: 7 DAYS WITHIN THE FIRST 9 CALENDAR DAYS PER 28-DAY CYCLE
     Route: 058
     Dates: start: 20211115, end: 20211121
  4. TANFLEX GARGARA [Concomitant]
     Indication: Infection prophylaxis
     Route: 049
     Dates: start: 20211108
  5. TANFLEX GARGARA [Concomitant]
     Indication: Antifungal prophylaxis
  6. PANTOPRAZOLE SODIUM [Concomitant]
     Active Substance: PANTOPRAZOLE SODIUM
     Indication: Nausea
     Route: 048
     Dates: start: 20211008, end: 20211215
  7. PANTOPRAZOLE SODIUM [Concomitant]
     Active Substance: PANTOPRAZOLE SODIUM
     Indication: Prophylaxis
  8. ONDANSETRON HYDROCHLORIDE [Concomitant]
     Active Substance: ONDANSETRON HYDROCHLORIDE
     Indication: Nausea
     Dosage: 8MG/4ML
     Route: 042
     Dates: start: 20211008, end: 20211029
  9. ONDANSETRON HYDROCHLORIDE [Concomitant]
     Active Substance: ONDANSETRON HYDROCHLORIDE
     Indication: Prophylaxis
     Dosage: 8MG/4ML
     Route: 048
     Dates: start: 20211115
  10. AKLOVIR [Concomitant]
     Indication: Infection prophylaxis
     Route: 048
     Dates: start: 20211008
  11. AKLOVIR [Concomitant]
     Indication: Antifungal prophylaxis
  12. MIKOSTATIN ORAL SUSPANSION [Concomitant]
     Indication: Infection prophylaxis
     Route: 049
     Dates: start: 20211008
  13. MIKOSTATIN ORAL SUSPANSION [Concomitant]
     Indication: Antifungal prophylaxis
  14. HIRUDOID FORTE GEL [Concomitant]
     Indication: Haemorrhage subcutaneous
     Route: 061
     Dates: start: 20211021
  15. CITOL [Concomitant]
     Indication: Anxiety
     Route: 048
     Dates: start: 20211105
  16. CITOL [Concomitant]
     Indication: Stress
  17. ORLAX [Concomitant]
     Indication: Gastrointestinal disorder prophylaxis
     Route: 048
     Dates: start: 20211115
  18. MEROPENEM [Concomitant]
     Active Substance: MEROPENEM
     Indication: Febrile neutropenia
     Route: 042
     Dates: start: 20211202, end: 20211221
  19. PROCAIN [Concomitant]
     Indication: Febrile neutropenia
     Dosage: 10/100 MG/ML
     Route: 042
     Dates: start: 20211202
  20. GERALGINE-K [Concomitant]
     Indication: Febrile neutropenia
     Route: 048
     Dates: start: 20211122
  21. CERNEVIT [Concomitant]
     Active Substance: VITAMINS
     Indication: Nausea
     Dosage: 10/100 IM/IV
     Route: 042
     Dates: start: 20211201
  22. AMBISOME [Concomitant]
     Active Substance: AMPHOTERICIN B
     Indication: Antifungal prophylaxis
     Route: 042
     Dates: start: 20211206, end: 20211208
  23. PAROL [Concomitant]
     Active Substance: ACETAMINOPHEN
     Indication: Febrile neutropenia
     Route: 042
     Dates: start: 20211207, end: 20211207
  24. LACTULOSE [Concomitant]
     Active Substance: LACTULOSE
     Indication: Gastrointestinal disorder prophylaxis
     Route: 048
     Dates: start: 20211115, end: 20211221
  25. IZOTONIK NACL PVC [Concomitant]
     Indication: Premedication
     Route: 042
     Dates: start: 20211020
  26. KYTRIL [Concomitant]
     Active Substance: GRANISETRON HYDROCHLORIDE
     Indication: Premedication
     Dosage: 3/3 MG/ML
     Route: 042
     Dates: start: 20211020

REACTIONS (3)
  - Cardiac arrest [Fatal]
  - Sinusitis fungal [Recovered/Resolved]
  - Neutropenic sepsis [Unknown]

NARRATIVE: CASE EVENT DATE: 20211209
